FAERS Safety Report 4630242-1 (Version None)
Quarter: 2005Q2

REPORT INFORMATION
  Report Type: 
  Country: None (occurrence: None)
  Receive Date: 20050405
  Receipt Date: 20050405
  Transmission Date: 20051028
  Serious: Yes (Hospitalization)
  Sender: FDA-Public Use
  Company Number: None

PATIENT
  Age: 78 Year
  Sex: Female
  Weight: 73.7 kg

DRUGS (11)
  1. SANTURA -TROSPIUM-     20MG [Suspect]
     Indication: URINARY INCONTINENCE
     Dosage: 20 MG  DAILY  ORAL
     Route: 048
     Dates: start: 20050331, end: 20050401
  2. LEVOTHYROXINE [Concomitant]
  3. PLAVIX [Concomitant]
  4. PROZAC [Concomitant]
  5. NORVASC [Concomitant]
  6. ASPIRIN [Concomitant]
  7. ALTOPREV  -LOVASTATIN- [Concomitant]
  8. MULTI-VITAMIN [Concomitant]
  9. DARVOCET-N 100 [Concomitant]
  10. DOCUSATE [Concomitant]
  11. METAMUCIL-2 [Concomitant]

REACTIONS (6)
  - ABDOMINAL DISTENSION [None]
  - ABDOMINAL PAIN [None]
  - ABDOMINAL TENDERNESS [None]
  - MALAISE [None]
  - NAUSEA [None]
  - VOMITING [None]
